FAERS Safety Report 10621476 (Version 1)
Quarter: 2014Q4

REPORT INFORMATION
  Report Type: Report from Study
  Country: JP (occurrence: JP)
  Receive Date: 20141203
  Receipt Date: 20141203
  Transmission Date: 20150529
  Serious: Yes (Other)
  Sender: FDA-Public Use
  Company Number: JP-ROCHE-1501080

PATIENT
  Age: 70 Year
  Sex: Male
  Weight: 67 kg

DRUGS (10)
  1. PROPETO [Concomitant]
     Indication: THROMBOANGIITIS OBLITERANS
     Route: 061
     Dates: start: 20140609
  2. PLETAAL [Concomitant]
     Active Substance: CILOSTAZOL
     Indication: THROMBOANGIITIS OBLITERANS
     Route: 048
     Dates: start: 20140609
  3. EXFORGE [Concomitant]
     Active Substance: AMLODIPINE BESYLATE\VALSARTAN
     Indication: THROMBOANGIITIS OBLITERANS
     Dosage: 1 DISE
     Route: 048
     Dates: start: 20140609
  4. EPADEL-S [Concomitant]
     Active Substance: ETHYL ICOSAPENTATE\ICOSAPENT
     Indication: THROMBOANGIITIS OBLITERANS
     Route: 048
     Dates: start: 20140609
  5. MUCOSTA [Concomitant]
     Active Substance: REBAMIPIDE
     Indication: PROPHYLAXIS
     Route: 048
     Dates: start: 20140609
  6. RIBAVIRIN. [Suspect]
     Active Substance: RIBAVIRIN
     Indication: CHRONIC HEPATITIS C
     Route: 048
     Dates: start: 20140303, end: 20140811
  7. RINDERON V [Concomitant]
     Active Substance: BETAMETHASONE VALERATE
     Indication: PRURITUS
     Route: 061
     Dates: start: 20140609
  8. SIMEPREVIR [Suspect]
     Active Substance: SIMEPREVIR
     Indication: CHRONIC HEPATITIS C
     Route: 048
     Dates: start: 20140303, end: 20140526
  9. PEGINTERFERON ALFA-2A [Suspect]
     Active Substance: PEGINTERFERON ALFA-2A
     Indication: CHRONIC HEPATITIS C
     Route: 058
     Dates: start: 20140303, end: 20140811
  10. OPALMON [Concomitant]
     Active Substance: LIMAPROST
     Indication: THROMBOANGIITIS OBLITERANS
     Route: 048
     Dates: start: 20140609

REACTIONS (2)
  - Injection site pruritus [Recovered/Resolved]
  - White blood cell count decreased [Recovered/Resolved]

NARRATIVE: CASE EVENT DATE: 20140331
